FAERS Safety Report 15598127 (Version 3)
Quarter: 2021Q1

REPORT INFORMATION
  Report Type: Spontaneous
  Country: US (occurrence: US)
  Receive Date: 20181108
  Receipt Date: 20210106
  Transmission Date: 20210419
  Serious: No
  Sender: FDA-Public Use
  Company Number: US-PFIZER INC-2018443359

PATIENT
  Age: 63 Year
  Sex: Female

DRUGS (5)
  1. ATORVASTATIN [Concomitant]
     Active Substance: ATORVASTATIN
     Dosage: UNK
     Dates: start: 2014
  2. CARVEDILOL. [Concomitant]
     Active Substance: CARVEDILOL
     Dosage: UNK
     Dates: start: 2014
  3. LYRICA [Suspect]
     Active Substance: PREGABALIN
     Indication: NEUROPATHY PERIPHERAL
     Dosage: 150 MG, 2X/DAY
     Dates: start: 2008
  4. CITALOPRAM [Concomitant]
     Active Substance: CITALOPRAM HYDROBROMIDE
     Dosage: UNK
     Dates: start: 2002
  5. ASPIRIN. [Concomitant]
     Active Substance: ASPIRIN
     Dosage: LOW DOSAGE

REACTIONS (8)
  - Muscle tightness [Unknown]
  - Muscle spasms [Unknown]
  - Memory impairment [Unknown]
  - Feeling abnormal [Unknown]
  - Pruritus [Unknown]
  - Withdrawal syndrome [Recovered/Resolved]
  - Loss of personal independence in daily activities [Unknown]
  - Tremor [Unknown]

NARRATIVE: CASE EVENT DATE: 201109
